FAERS Safety Report 10101193 (Version 1)
Quarter: 2014Q2

REPORT INFORMATION
  Report Type: Spontaneous
  Country: GB (occurrence: GB)
  Receive Date: 20140424
  Receipt Date: 20140424
  Transmission Date: 20141212
  Serious: Yes (Other)
  Sender: FDA-Public Use
  Company Number: GB-AMGEN-GBRSP2014028450

PATIENT
  Age: 75 Year
  Sex: Female

DRUGS (11)
  1. PROLIA [Suspect]
     Indication: OSTEOPOROTIC FRACTURE
     Dosage: 60 MG, UNK
     Route: 058
     Dates: start: 20140205
  2. BENDROFLUMETHIAZIDE [Concomitant]
  3. CALCICHEW D3 [Concomitant]
  4. CO-DYDRAMOL [Concomitant]
  5. FOLIC ACID [Concomitant]
  6. IPRATROPIUM BROMIDE [Concomitant]
  7. LANSOPRAZOLE [Concomitant]
  8. METHOTREXATE [Concomitant]
  9. PREDNISOLONE [Concomitant]
  10. SERETIDE [Concomitant]
  11. VENTOLIN                           /00139501/ [Concomitant]

REACTIONS (6)
  - Influenza like illness [Recovering/Resolving]
  - Headache [Recovered/Resolved]
  - Neck pain [Recovering/Resolving]
  - Myalgia [Recovering/Resolving]
  - Constipation [Recovering/Resolving]
  - Pain in extremity [Recovering/Resolving]
